FAERS Safety Report 21646335 (Version 3)
Quarter: 2023Q4

REPORT INFORMATION
  Report Type: Spontaneous
  Country: IT (occurrence: IT)
  Receive Date: 20221126
  Receipt Date: 20231007
  Transmission Date: 20240110
  Serious: Yes (Hospitalization, Other)
  Sender: FDA-Public Use
  Company Number: IT-Accord-288193

PATIENT
  Age: 14 Year
  Sex: Female

DRUGS (4)
  1. ARIPIPRAZOLE [Suspect]
     Active Substance: ARIPIPRAZOLE
     Indication: Depressive symptom
  2. SERTRALINE [Suspect]
     Active Substance: SERTRALINE HYDROCHLORIDE
     Indication: Depressive symptom
  3. LORAZEPAM [Suspect]
     Active Substance: LORAZEPAM
     Indication: Depressive symptom
     Dosage: HIGH-DOSE
  4. DELORAZEPAM [Suspect]
     Active Substance: DELORAZEPAM
     Indication: Depressive symptom
     Dosage: HIGH-DOSE

REACTIONS (3)
  - Off label use [Unknown]
  - Drug ineffective [Unknown]
  - Myasthenia gravis [Recovering/Resolving]
